FAERS Safety Report 15385111 (Version 3)
Quarter: 2021Q2

REPORT INFORMATION
  Report Type: Spontaneous
  Country: US (occurrence: US)
  Receive Date: 20180914
  Receipt Date: 20210607
  Transmission Date: 20210716
  Serious: No
  Sender: FDA-Public Use
  Company Number: PHEH2018US038571

PATIENT
  Age: 58 Year
  Sex: Male

DRUGS (3)
  1. VOTRIENT [Suspect]
     Active Substance: PAZOPANIB HYDROCHLORIDE
     Indication: RENAL CANCER
     Dosage: 800 MG, QD
     Route: 048
     Dates: start: 20180821
  2. MOXIFLOXACIN. [Suspect]
     Active Substance: MOXIFLOXACIN
     Indication: SINUSITIS
     Dosage: 400 MG, QD
     Route: 065
  3. FLUCONAZOL [Suspect]
     Active Substance: FLUCONAZOLE
     Indication: TINEA INFECTION
     Dosage: 200 MG, QD
     Route: 065

REACTIONS (7)
  - Blood pressure increased [Unknown]
  - Diarrhoea [Unknown]
  - Glossodynia [Unknown]
  - Nausea [Unknown]
  - Pain in extremity [Unknown]
  - Taste disorder [Unknown]
  - Fatigue [Unknown]

NARRATIVE: CASE EVENT DATE: 20180901
